FAERS Safety Report 6539238-6 (Version None)
Quarter: 2010Q1

REPORT INFORMATION
  Report Type: 
  Country: None (occurrence: None)
  Receive Date: 20100115
  Receipt Date: 20091210
  Transmission Date: 20100710
  Serious: Yes (Other)
  Sender: FDA-Public Use
  Company Number: DK-NOVOPROD-300660

PATIENT
  Sex: Male
  Weight: 3.07 kg

DRUGS (2)
  1. LEVEMIR [Suspect]
     Indication: DRUG EXPOSURE DURING PREGNANCY
     Dosage: 34 IU, UNK
     Route: 064
  2. NOVORAPID [Suspect]
     Indication: DRUG EXPOSURE DURING PREGNANCY
     Dosage: 14 IU, UNK
     Route: 064

REACTIONS (2)
  - DRUG EXPOSURE DURING PREGNANCY [None]
  - NEONATAL ASPHYXIA [None]
